FAERS Safety Report 8234114-5 (Version None)
Quarter: 2012Q1

REPORT INFORMATION
  Report Type: 
  Country: None (occurrence: None)
  Receive Date: 20120326
  Receipt Date: 20120326
  Transmission Date: 20120608
  Serious: Yes (Other)
  Sender: FDA-Public Use
  Company Number: None

PATIENT
  Age: 62 Year
  Sex: Male
  Weight: 81.646 kg

DRUGS (2)
  1. CREST W/ FLUORIDE [Suspect]
  2. CREST W/ FLUORIDE [Suspect]
     Indication: DENTAL CARE
     Dosage: 20 MILLIMETERS
     Route: 048
     Dates: start: 20120323, end: 20120325

REACTIONS (1)
  - PAROTID GLAND ENLARGEMENT [None]
